FAERS Safety Report 6832181-4 (Version None)
Quarter: 2010Q3

REPORT INFORMATION
  Report Type: 
  Country: None (occurrence: None)
  Receive Date: 20100712
  Receipt Date: 20100629
  Transmission Date: 20110219
  Serious: Yes (Other)
  Sender: FDA-Public Use
  Company Number: PHHY2010US43049

PATIENT
  Age: 70 Year
  Sex: Female

DRUGS (6)
  1. RECLAST [Suspect]
     Indication: OSTEOPOROSIS
     Dosage: 5 MG
     Dates: start: 20100601
  2. SYNTHROID [Concomitant]
  3. FEMARA [Concomitant]
  4. REQUIP [Concomitant]
  5. OXYCONTIN [Concomitant]
  6. ZOCOR [Concomitant]

REACTIONS (1)
  - BREAST CANCER METASTATIC [None]
